FAERS Safety Report 17706230 (Version 1)
Quarter: 2020Q2

REPORT INFORMATION
  Report Type: Report from Study
  Country: FR (occurrence: FR)
  Receive Date: 20200424
  Receipt Date: 20200424
  Transmission Date: 20200714
  Serious: Yes (Hospitalization)
  Sender: FDA-Public Use
  Company Number: FR-JNJFOC-20200428971

PATIENT
  Age: 50 Year
  Sex: Male

DRUGS (14)
  1. TERCIAN                            /00759301/ [Suspect]
     Active Substance: CYAMEMAZINE
     Indication: PRODUCT USED FOR UNKNOWN INDICATION
     Route: 065
     Dates: start: 20190108
  2. ENSTILAR [Concomitant]
     Active Substance: BETAMETHASONE DIPROPIONATE\CALCIPOTRIENE HYDRATE
  3. NORSET [Concomitant]
     Active Substance: MIRTAZAPINE
  4. METHOTREXATE. [Concomitant]
     Active Substance: METHOTREXATE
  5. AOTAL [Concomitant]
     Active Substance: ACAMPROSATE CALCIUM
  6. REMICADE [Suspect]
     Active Substance: INFLIXIMAB
     Indication: PSORIASIS
     Route: 042
     Dates: start: 20180813
  7. THERALENE [Concomitant]
     Active Substance: TRIMEPRAZINE
  8. ACITRETINE [Concomitant]
     Active Substance: ACITRETIN
  9. SERESTA [Concomitant]
     Active Substance: OXAZEPAM
  10. DIPROSALIC [Concomitant]
     Active Substance: BETAMETHASONE DIPROPIONATE
  11. NOZINAN                            /00038601/ [Concomitant]
     Active Substance: LEVOMEPROMAZINE
  12. FOLIC ACID. [Concomitant]
     Active Substance: FOLIC ACID
  13. VALIUM [Concomitant]
     Active Substance: DIAZEPAM
  14. TRIDESONIT [Concomitant]
     Active Substance: DESONIDE

REACTIONS (2)
  - Hepatitis [Recovered/Resolved]
  - Suicide attempt [Recovered/Resolved]

NARRATIVE: CASE EVENT DATE: 20190108
